FAERS Safety Report 20253636 (Version 2)
Quarter: 2022Q1

REPORT INFORMATION
  Report Type: Report from Study
  Country: US (occurrence: US)
  Receive Date: 20211230
  Receipt Date: 20220214
  Transmission Date: 20220423
  Serious: No
  Sender: FDA-Public Use
  Company Number: US-BIOVITRUM-2021US12870

PATIENT
  Sex: Female

DRUGS (6)
  1. SYNAGIS [Suspect]
     Active Substance: PALIVIZUMAB
     Indication: Antiviral prophylaxis
     Dosage: 100MG/1ML
     Route: 030
  2. ASPIRIN [Concomitant]
     Active Substance: ASPIRIN
     Dosage: LOW DOSE
  3. GAS RELIEF DROPS [Concomitant]
     Active Substance: DIMETHICONE
  4. FLUTICASONE PROPIONATE/SA [Concomitant]
  5. ALBUTEROL [Concomitant]
     Active Substance: ALBUTEROL
  6. VITAMIN D [Concomitant]
     Active Substance: VITAMIN D NOS

REACTIONS (2)
  - Nasopharyngitis [Unknown]
  - Pyrexia [Unknown]
